FAERS Safety Report 15759335 (Version 1)
Quarter: 2018Q4

REPORT INFORMATION
  Report Type: Report from Study
  Country: CA (occurrence: CA)
  Receive Date: 20181226
  Receipt Date: 20181226
  Transmission Date: 20190205
  Serious: Yes (Other)
  Sender: FDA-Public Use
  Company Number: CA-ROCHE-2121804

PATIENT
  Age: 53 Year
  Sex: Female

DRUGS (2)
  1. OCREVUS [Suspect]
     Active Substance: OCRELIZUMAB
     Dosage: DAY 0 AND DAY 14, THEN 600MG Q 6 MONTHS
     Route: 042
     Dates: start: 20180518
  2. OCREVUS [Suspect]
     Active Substance: OCRELIZUMAB
     Indication: PRIMARY PROGRESSIVE MULTIPLE SCLEROSIS
     Dosage: DAY 0 AND DAY 14, THEN 600MG Q 6 MONTHS
     Route: 042
     Dates: start: 20180503

REACTIONS (6)
  - Infusion related reaction [Recovered/Resolved]
  - Muscle spasms [Recovered/Resolved]
  - Atypical mycobacterium test positive [Unknown]
  - Pruritus [Recovering/Resolving]
  - Fatigue [Recovered/Resolved]
  - Erythema [Recovering/Resolving]

NARRATIVE: CASE EVENT DATE: 20180503
